FAERS Safety Report 25722527 (Version 1)
Quarter: 2025Q3

REPORT INFORMATION
  Report Type: Spontaneous
  Country: US (occurrence: US)
  Receive Date: 20250825
  Receipt Date: 20250825
  Transmission Date: 20251020
  Serious: Yes (Hospitalization)
  Sender: SANOFI AVENTIS
  Company Number: US-SA-SAC20221214001190

PATIENT
  Age: 61 Year
  Sex: Male

DRUGS (10)
  1. DUPIXENT [Suspect]
     Active Substance: DUPILUMAB
     Indication: Asthma
     Route: 058
  2. DUPIXENT [Suspect]
     Active Substance: DUPILUMAB
     Dosage: 300 MG, QOW
     Route: 058
  3. DUPIXENT [Suspect]
     Active Substance: DUPILUMAB
     Dosage: 300 MG, QOW
     Route: 058
  4. MINERALS\VITAMINS [Concomitant]
     Active Substance: MINERALS\VITAMINS
  5. HUMALOG [Concomitant]
     Active Substance: INSULIN LISPRO
  6. FINASTERIDE [Concomitant]
     Active Substance: FINASTERIDE
  7. CAYSTON [Concomitant]
     Active Substance: AZTREONAM
  8. LANTUS [Concomitant]
     Active Substance: INSULIN GLARGINE
  9. BACLOFEN [Concomitant]
     Active Substance: BACLOFEN
  10. ALBUTEROL SULFATE [Concomitant]
     Active Substance: ALBUTEROL SULFATE

REACTIONS (3)
  - Hospitalisation [Unknown]
  - Surgery [Unknown]
  - Drug ineffective [Unknown]

NARRATIVE: CASE EVENT DATE: 20221101
